FAERS Safety Report 10004634 (Version 1)
Quarter: 2014Q1

REPORT INFORMATION
  Report Type: Spontaneous
  Country: US (occurrence: US)
  Receive Date: 20140312
  Receipt Date: 20140312
  Transmission Date: 20141002
  Serious: No
  Sender: FDA-Public Use
  Company Number: US-INCYTE CORPORATION-2013IN003030

PATIENT
  Sex: Male
  Weight: 70.3 kg

DRUGS (6)
  1. JAKAFI [Suspect]
     Indication: MYELOFIBROSIS
     Dosage: 5 MG, BID
     Route: 048
     Dates: start: 20130827
  2. PANTOPRAZOLE SODIUM [Concomitant]
  3. VERAPAMIL [Concomitant]
  4. ASPIRIN [Concomitant]
  5. OMEGA 3 FISH OILS [Concomitant]
  6. IRON [Concomitant]

REACTIONS (2)
  - Dyspepsia [Unknown]
  - Contusion [Unknown]
